FAERS Safety Report 19000290 (Version 2)
Quarter: 2021Q3

REPORT INFORMATION
  Report Type: Spontaneous
  Country: GB (occurrence: GB)
  Receive Date: 20210311
  Receipt Date: 20210903
  Transmission Date: 20211014
  Serious: Yes (Death, Hospitalization, Other)
  Sender: FDA-Public Use
  Company Number: GB-TAKEDA-2019TEU015856

PATIENT
  Age: 39 Year
  Sex: Male

DRUGS (14)
  1. LEVETIRACETAM. [Suspect]
     Active Substance: LEVETIRACETAM
     Dosage: UNK
     Route: 065
  2. FENTANYL. [Suspect]
     Active Substance: FENTANYL
     Dosage: UNK
     Route: 042
  3. THIOPENTAL SODIUM. [Suspect]
     Active Substance: THIOPENTAL SODIUM
     Dosage: UNK
     Route: 042
  4. PHENYTOIN. [Suspect]
     Active Substance: PHENYTOIN
     Indication: STATUS EPILEPTICUS
     Dosage: UNK
     Route: 065
  5. CLONAZEPAM. [Suspect]
     Active Substance: CLONAZEPAM
     Indication: STATUS EPILEPTICUS
     Dosage: UNK
     Route: 065
  6. PREDNISOLONE. [Suspect]
     Active Substance: PREDNISOLONE
     Indication: STATUS EPILEPTICUS
     Dosage: UNK
     Route: 065
  7. LEVETIRACETAM. [Suspect]
     Active Substance: LEVETIRACETAM
     Indication: STATUS EPILEPTICUS
     Dosage: UNK
     Route: 065
  8. FENTANYL. [Suspect]
     Active Substance: FENTANYL
     Indication: STATUS EPILEPTICUS
     Dosage: 100 MICROGRAM, Q1HR
     Route: 065
     Dates: end: 20170128
  9. PROPOFOL. [Suspect]
     Active Substance: PROPOFOL
     Dosage: 1 MILLIGRAM/KILOGRAM, Q1HR
     Route: 065
     Dates: end: 20170128
  10. VALPROATE SODIUM. [Suspect]
     Active Substance: VALPROATE SODIUM
     Indication: STATUS EPILEPTICUS
     Dosage: UNK
     Route: 065
  11. PHENOBARBITONE [Suspect]
     Active Substance: PHENOBARBITAL
     Indication: STATUS EPILEPTICUS
     Dosage: UNK
     Route: 065
  12. PROPOFOL. [Suspect]
     Active Substance: PROPOFOL
     Indication: STATUS EPILEPTICUS
     Dosage: UNK
     Route: 065
     Dates: end: 20170128
  13. TOPIRAMATE. [Suspect]
     Active Substance: TOPIRAMATE
     Indication: STATUS EPILEPTICUS
     Dosage: UNKNOWN
     Route: 048
  14. THIOPENTAL SODIUM. [Suspect]
     Active Substance: THIOPENTAL SODIUM
     Indication: STATUS EPILEPTICUS
     Dosage: UNK
     Route: 042
     Dates: start: 20161114, end: 20170109

REACTIONS (17)
  - Product use in unapproved indication [Fatal]
  - Colitis ischaemic [Fatal]
  - Intentional product use issue [Fatal]
  - Sepsis [Fatal]
  - Acute kidney injury [Fatal]
  - Pseudomembranous colitis [Fatal]
  - Abdominal wall haematoma [Fatal]
  - Intensive care unit acquired weakness [Fatal]
  - Off label use [Fatal]
  - Malabsorption [Fatal]
  - Deep vein thrombosis [Fatal]
  - Multiple organ dysfunction syndrome [Fatal]
  - Autonomic nervous system imbalance [Fatal]
  - Coagulopathy [Fatal]
  - Hepatitis fulminant [Fatal]
  - Metabolic acidosis [Fatal]
  - Infection [Fatal]
